FAERS Safety Report 16045804 (Version 2)
Quarter: 2019Q2

REPORT INFORMATION
  Report Type: Spontaneous
  Country: US (occurrence: US)
  Receive Date: 20190307
  Receipt Date: 20190510
  Transmission Date: 20190711
  Serious: Yes (Hospitalization)
  Sender: FDA-Public Use
  Company Number: US-BIOGEN-2019BI00704620

PATIENT
  Sex: Female

DRUGS (1)
  1. AVONEX [Suspect]
     Active Substance: INTERFERON BETA-1A
     Indication: MULTIPLE SCLEROSIS
     Route: 030
     Dates: start: 20170320

REACTIONS (5)
  - Rash [Recovered/Resolved]
  - Fibromyalgia [Unknown]
  - Cerebrovascular accident [Recovered/Resolved]
  - Sciatica [Unknown]
  - Depression [Unknown]
